FAERS Safety Report 9813091 (Version 1)
Quarter: 2014Q1

REPORT INFORMATION
  Report Type: Spontaneous
  Country: GB (occurrence: None)
  Receive Date: 20140109
  Receipt Date: 20140109
  Transmission Date: 20141002
  Serious: Yes (Hospitalization)
  Sender: FDA-Public Use
  Company Number: SYM-2013-14457

PATIENT
  Age: 83 Year
  Sex: 0

DRUGS (10)
  1. METRONIDAZOLE [Suspect]
     Indication: ANTIBIOTIC PROPHYLAXIS
     Route: 042
     Dates: start: 20111121, end: 20111121
  2. OMEPRAZOLE [Suspect]
     Indication: PRODUCT USED FOR UNKNOWN INDICATION
     Route: 048
  3. CEFUROXIME [Suspect]
     Indication: ANTIBIOTIC PROPHYLAXIS
     Route: 042
     Dates: start: 20111121, end: 20111121
  4. SENNA (SENNA ALEXANDRINA) [Concomitant]
  5. DIPYRIDAMOLE (DIPYRIDAMOLE) [Concomitant]
  6. CO-CODAMOL (PANADEINE CO) (CODEINE PHOSPHATE, PARACETAMOL) [Concomitant]
  7. ALFACALCIDOL [Concomitant]
  8. SIMVASTATIN [Concomitant]
  9. ALENDRONIC ACID (ALENDRONIC ACID) [Concomitant]
  10. TAZOCIN (PIP/TAZO) (PIPERACILLIN SODIUM, TAZOBACTAM SODIUM) [Concomitant]

REACTIONS (1)
  - Clostridium difficile infection [None]
